FAERS Safety Report 21172122 (Version 1)
Quarter: 2022Q3

REPORT INFORMATION
  Report Type: Spontaneous
  Country: CA (occurrence: CA)
  Receive Date: 20220804
  Receipt Date: 20220804
  Transmission Date: 20221026
  Serious: Yes (Other)
  Sender: FDA-Public Use
  Company Number: CA-JNJFOC-20220753444

PATIENT
  Age: 55 Year
  Sex: Male

DRUGS (14)
  1. RISPERDAL [Interacting]
     Active Substance: RISPERIDONE
     Indication: Depression
     Route: 065
  2. BUPROPION [Interacting]
     Active Substance: BUPROPION
     Indication: Depression
     Route: 065
  3. CLONAZEPAM [Interacting]
     Active Substance: CLONAZEPAM
     Indication: Depression
     Route: 065
  4. DEXEDRINE [Interacting]
     Active Substance: DEXTROAMPHETAMINE SULFATE
     Indication: Depression
     Route: 065
  5. LITHIUM CARBONATE [Interacting]
     Active Substance: LITHIUM CARBONATE
     Indication: Depression
     Route: 065
  6. LORAZEPAM [Interacting]
     Active Substance: LORAZEPAM
     Indication: Depression
     Route: 065
  7. OLANZAPINE [Interacting]
     Active Substance: OLANZAPINE
     Indication: Depression
     Route: 065
  8. PAROXETINE [Interacting]
     Active Substance: PAROXETINE
     Indication: Depression
     Route: 065
  9. RALTEGRAVIR [Interacting]
     Active Substance: RALTEGRAVIR
     Indication: HIV infection
     Route: 065
  10. DARUNAVIR\RITONAVIR [Concomitant]
     Active Substance: DARUNAVIR\RITONAVIR
     Indication: HIV infection
     Route: 065
  11. ABACAVIR [Concomitant]
     Active Substance: ABACAVIR
     Indication: HIV infection
     Route: 065
  12. EMTRICITABINE [Concomitant]
     Active Substance: EMTRICITABINE
     Indication: HIV infection
     Route: 065
  13. LAMIVUDINE [Concomitant]
     Active Substance: LAMIVUDINE
     Indication: HIV infection
     Route: 065
  14. NEVIRAPINE [Concomitant]
     Active Substance: NEVIRAPINE
     Indication: HIV infection
     Route: 065

REACTIONS (3)
  - Psychiatric decompensation [Unknown]
  - Drug interaction [Unknown]
  - Off label use [Unknown]
